FAERS Safety Report 18488621 (Version 1)
Quarter: 2020Q4

REPORT INFORMATION
  Report Type: Spontaneous
  Country: US (occurrence: US)
  Receive Date: 20201110
  Receipt Date: 20201110
  Transmission Date: 20210114
  Serious: No
  Sender: FDA-Public Use
  Company Number: US-PURDUE-USA-2020-0149785

PATIENT

DRUGS (1)
  1. MS CONTIN [Suspect]
     Active Substance: MORPHINE SULFATE
     Indication: BACK PAIN
     Dosage: 30 MG, BID
     Route: 048

REACTIONS (1)
  - Drug ineffective [Unknown]
